FAERS Safety Report 4452941-7 (Version None)
Quarter: 2004Q3

REPORT INFORMATION
  Report Type: 
  Country: None (occurrence: None)
  Receive Date: 20040916
  Receipt Date: 20040901
  Transmission Date: 20050211
  Serious: Yes (Hospitalization)
  Sender: FDA-Public Use
  Company Number: 2004US001043

PATIENT
  Age: 45 Year
  Sex: Male
  Weight: 67 kg

DRUGS (4)
  1. PROGRAF [Suspect]
     Indication: HEART TRANSPLANT
     Dosage: 3.00 MG, BID, ORAL
     Route: 048
     Dates: start: 20020828
  2. SIROLIMUS (SIROLIMUS) [Concomitant]
  3. PREDNISONE [Concomitant]
  4. TEGRETOL [Concomitant]

REACTIONS (7)
  - ANTICONVULSANT TOXICITY [None]
  - ATAXIA [None]
  - DIPLOPIA [None]
  - DRUG INTERACTION POTENTIATION [None]
  - NAUSEA [None]
  - TREMOR [None]
  - VOMITING [None]
